FAERS Safety Report 8591386-5 (Version None)
Quarter: 2012Q3

REPORT INFORMATION
  Report Type: 
  Country: None (occurrence: None)
  Receive Date: 20120803
  Receipt Date: 20120803
  Transmission Date: 20120928
  Serious: Yes (Other)
  Sender: FDA-Public Use
  Company Number: None

PATIENT
  Age: 49 Year
  Sex: Female
  Weight: 144.2439 kg

DRUGS (1)
  1. ONGLYZA [Suspect]
     Indication: TYPE 2 DIABETES MELLITUS
     Dosage: ONCE DAILY PO
     Route: 048
     Dates: start: 20120529, end: 20120724

REACTIONS (8)
  - BRONCHITIS CHRONIC [None]
  - NASOPHARYNGITIS [None]
  - OROPHARYNGEAL PAIN [None]
  - EAR PAIN [None]
  - COUGH [None]
  - URINARY TRACT INFECTION [None]
  - GALLBLADDER DISORDER [None]
  - RESPIRATORY TRACT CONGESTION [None]
